FAERS Safety Report 22526604 (Version 1)
Quarter: 2023Q2

REPORT INFORMATION
  Report Type: Report from Study
  Country: US (occurrence: US)
  Receive Date: 20230606
  Receipt Date: 20230606
  Transmission Date: 20230722
  Serious: Yes (Hospitalization, Other)
  Sender: FDA-Public Use
  Company Number: US-MYLANLABS-2023M1058297

PATIENT
  Age: 77 Year
  Sex: Female
  Weight: 47.6 kg

DRUGS (21)
  1. SILDENAFIL [Suspect]
     Active Substance: SILDENAFIL
     Indication: Product used for unknown indication
     Dosage: UNK
     Route: 048
  2. TREPROSTINIL [Suspect]
     Active Substance: TREPROSTINIL
     Indication: Pulmonary arterial hypertension
     Dosage: 2.5 MILLIGRAM, Q8H
     Route: 048
  3. TREPROSTINIL [Suspect]
     Active Substance: TREPROSTINIL
     Dosage: UNK
     Route: 048
     Dates: start: 20150310
  4. ORENITRAM [Suspect]
     Active Substance: TREPROSTINIL
     Indication: Pulmonary arterial hypertension
     Dosage: UNK
     Route: 048
  5. ORENITRAM [Suspect]
     Active Substance: TREPROSTINIL
     Dosage: 2.5 MILLIGRAM, Q8H
     Route: 048
     Dates: start: 20150310
  6. POTASSIUM [Suspect]
     Active Substance: POTASSIUM
     Indication: Product used for unknown indication
     Dosage: 10 MEQ (1 TABLET OF 10 MEQ), QD
     Route: 048
  7. CARBIDOPA\LEVODOPA [Suspect]
     Active Substance: CARBIDOPA\LEVODOPA
     Indication: Parkinson^s disease
     Dosage: UNK, 25-100 MG TABLET
     Route: 065
  8. DICYCLOMINE HYDROCHLORIDE [Concomitant]
     Active Substance: DICYCLOMINE HYDROCHLORIDE
     Dosage: UNK
     Route: 065
  9. DIGOXIN [Concomitant]
     Active Substance: DIGOXIN
     Dosage: UNK
     Route: 065
  10. FERROUS SULFATE [Concomitant]
     Active Substance: FERROUS SULFATE
     Dosage: UNK
     Route: 065
  11. FOLIC ACID [Concomitant]
     Active Substance: FOLIC ACID
     Dosage: UNK
     Route: 065
  12. FUROSEMIDE [Concomitant]
     Active Substance: FUROSEMIDE
     Dosage: UNK
     Route: 065
  13. LOPERAMIDE HYDROCHLORIDE [Concomitant]
     Active Substance: LOPERAMIDE HYDROCHLORIDE
     Dosage: UNK
     Route: 065
  14. LYRICA [Concomitant]
     Active Substance: PREGABALIN
     Dosage: UNK
     Route: 065
  15. MAGNESIUM [Concomitant]
     Active Substance: MAGNESIUM
     Dosage: UNK
     Route: 065
  16. METHOTREXATE SODIUM [Concomitant]
     Active Substance: METHOTREXATE SODIUM
     Dosage: UNK
     Route: 065
  17. METOPROLOL SUCCINATE [Concomitant]
     Active Substance: METOPROLOL SUCCINATE
     Dosage: UNK
     Route: 065
  18. PRADAXA [Concomitant]
     Active Substance: DABIGATRAN ETEXILATE MESYLATE
     Dosage: UNK
     Route: 065
  19. REFRESH CLASSIC [Concomitant]
     Active Substance: POLYVINYL ALCOHOL\POVIDONE
     Dosage: UNK
     Route: 065
  20. RESTASIS [Concomitant]
     Active Substance: CYCLOSPORINE
     Dosage: UNK
     Route: 065
  21. VALTREX [Concomitant]
     Active Substance: VALACYCLOVIR HYDROCHLORIDE
     Dosage: UNK
     Route: 065

REACTIONS (65)
  - Atrial fibrillation [Unknown]
  - Abdominal pain [Unknown]
  - Arthralgia [Unknown]
  - Pericardial effusion [Unknown]
  - Pneumonia [Recovered/Resolved]
  - Pulmonary hypertension [Unknown]
  - Peptic ulcer [Unknown]
  - Cardiac failure congestive [Unknown]
  - Tricuspid valve incompetence [Unknown]
  - Atelectasis [Unknown]
  - Interstitial lung abnormality [Unknown]
  - Memory impairment [Unknown]
  - Fatigue [Unknown]
  - Weight decreased [Unknown]
  - Ear pain [Unknown]
  - Ear discomfort [Unknown]
  - Sneezing [Unknown]
  - Dyspnoea exertional [Unknown]
  - Listless [Unknown]
  - Pleural effusion [Unknown]
  - Blood potassium increased [Unknown]
  - White blood cell count decreased [Unknown]
  - Right atrial enlargement [Unknown]
  - Gait disturbance [Unknown]
  - Malaise [Unknown]
  - Night sweats [Unknown]
  - Facial pain [Unknown]
  - Visual impairment [Unknown]
  - Photophobia [Unknown]
  - Stomatitis [Unknown]
  - Chest pain [Unknown]
  - Peripheral coldness [Unknown]
  - Joint stiffness [Unknown]
  - Tremor [Recovered/Resolved]
  - Sleep disorder [Unknown]
  - Aphthous ulcer [Unknown]
  - Lymphoedema [Unknown]
  - Thyroid mass [Unknown]
  - Skin ulcer [Unknown]
  - Intervertebral disc degeneration [Unknown]
  - Cyst [Unknown]
  - Anaemia [Unknown]
  - Cardiomegaly [Unknown]
  - Maximal voluntary ventilation decreased [Unknown]
  - Intervertebral disc space narrowing [Unknown]
  - Renal cyst [Unknown]
  - Pancreatic steatosis [Unknown]
  - Forced expiratory volume decreased [Unknown]
  - Diastolic dysfunction [Unknown]
  - Left atrial enlargement [Unknown]
  - Lymphadenopathy mediastinal [Unknown]
  - Chest discomfort [Unknown]
  - Hiatus hernia [Unknown]
  - Lung opacity [Unknown]
  - Lung consolidation [Unknown]
  - Dry eye [Unknown]
  - Palpitations [Unknown]
  - Myalgia [Unknown]
  - Dyspepsia [Unknown]
  - Diarrhoea [Unknown]
  - Oedema peripheral [Unknown]
  - Headache [Unknown]
  - Dyspnoea [Unknown]
  - Arthritis [Unknown]
  - Dizziness [Unknown]

NARRATIVE: CASE EVENT DATE: 20150618
